FAERS Safety Report 17403068 (Version 1)
Quarter: 2020Q1

REPORT INFORMATION
  Report Type: Spontaneous
  Country: US (occurrence: US)
  Receive Date: 20200211
  Receipt Date: 20200211
  Transmission Date: 20200409
  Serious: No
  Sender: FDA-Public Use
  Company Number: US-PERRIGO-19US016845

PATIENT
  Age: 69 Year
  Sex: Female

DRUGS (1)
  1. TRETINOIN. [Suspect]
     Active Substance: TRETINOIN
     Indication: ROSACEA
     Dosage: A LITTLE BIT, QD PRN
     Route: 061

REACTIONS (1)
  - Off label use [Not Recovered/Not Resolved]
